FAERS Safety Report 15243823 (Version 5)
Quarter: 2018Q4

REPORT INFORMATION
  Report Type: Report from Study
  Country: US (occurrence: US)
  Receive Date: 20180806
  Receipt Date: 20181123
  Transmission Date: 20190204
  Serious: No
  Sender: FDA-Public Use
  Company Number: US-SA-2018SA083042

PATIENT
  Age: 17 Year
  Sex: Male
  Weight: 69.5 kg

DRUGS (5)
  1. SALBUTAMOL [Suspect]
     Active Substance: ALBUTEROL
     Indication: ASTHMA
     Dosage: 2 DF,QD
     Route: 055
     Dates: start: 2002
  2. FORMOTEROL FUMARATE/MOMETASONE FUROATE [Suspect]
     Active Substance: FORMOTEROL FUMARATE\MOMETASONE FUROATE
     Indication: ASTHMA
     Dosage: 400 UG,BID
     Route: 055
     Dates: start: 20141211, end: 20161219
  3. DUPILUMAB [Suspect]
     Active Substance: DUPILUMAB
     Indication: ASTHMA
     Dosage: 300 MG,1X
     Route: 058
     Dates: start: 20161220, end: 20161220
  4. DUPILUMAB [Suspect]
     Active Substance: DUPILUMAB
     Dosage: 600 MG,QOW
     Route: 058
     Dates: start: 20170104, end: 20180111
  5. FORMOTEROL FUMARATE/MOMETASONE FUROATE [Suspect]
     Active Substance: FORMOTEROL FUMARATE\MOMETASONE FUROATE
     Dosage: 400 UG,BID
     Route: 055
     Dates: start: 20161220

REACTIONS (2)
  - Blastocystis infection [Recovered/Resolved]
  - Infection parasitic [Recovering/Resolving]

NARRATIVE: CASE EVENT DATE: 20180227
